FAERS Safety Report 4958753-X (Version None)
Quarter: 2006Q1

REPORT INFORMATION
  Report Type: 
  Country: None (occurrence: None)
  Receive Date: 20060330
  Receipt Date: 20050318
  Transmission Date: 20060701
  Serious: Yes (Other)
  Sender: FDA-Public Use
  Company Number: US-MERCK-0503USA03829

PATIENT
  Age: 77 Year
  Sex: Female
  Weight: 61 kg

DRUGS (10)
  1. VIOXX [Suspect]
     Route: 048
     Dates: start: 20020501, end: 20031022
  2. LOPRESSOR [Concomitant]
     Route: 065
  3. ZYRTEC [Concomitant]
     Route: 065
  4. LIPITOR [Concomitant]
     Route: 065
  5. CARDIZEM [Concomitant]
     Route: 065
  6. PRILOSEC [Concomitant]
     Route: 065
  7. DARVOCET [Concomitant]
     Route: 065
  8. DIOVAN [Concomitant]
     Route: 065
  9. ANTIVERT [Concomitant]
     Route: 065
  10. ULTRACET [Concomitant]
     Route: 065

REACTIONS (2)
  - CEREBROVASCULAR ACCIDENT [None]
  - INFLUENZA [None]
